FAERS Safety Report 20894982 (Version 1)
Quarter: 2022Q2

REPORT INFORMATION
  Report Type: Spontaneous
  Country: DK (occurrence: DK)
  Receive Date: 20220531
  Receipt Date: 20220531
  Transmission Date: 20220721
  Serious: Yes (Hospitalization)
  Sender: FDA-Public Use
  Company Number: None

PATIENT
  Age: 78 Year
  Sex: Female

DRUGS (1)
  1. OXYCONTIN [Suspect]
     Active Substance: OXYCODONE HYDROCHLORIDE
     Indication: Radius fracture
     Dosage: STRENGTH: 10 MGDOSAGE: DOSAGE REDUCED TO AN UNSPECIFIED DOSAGE ON 16APR2022.
     Route: 048
     Dates: start: 20220319

REACTIONS (3)
  - Waist circumference increased [Unknown]
  - Abdominal pain [Unknown]
  - Constipation [Recovering/Resolving]

NARRATIVE: CASE EVENT DATE: 20220421
